FAERS Safety Report 15492638 (Version 1)
Quarter: 2018Q4

REPORT INFORMATION
  Report Type: Report from Study
  Country: UG (occurrence: UG)
  Receive Date: 20181012
  Receipt Date: 20181012
  Transmission Date: 20190205
  Serious: Yes (Congenital Anomaly)
  Sender: FDA-Public Use
  Company Number: UG-VIIV HEALTHCARE LIMITED-UG2018GSK177812

PATIENT
  Age: 0 Day
  Sex: Female
  Weight: 2.7 kg

DRUGS (4)
  1. MULTIVITAMINS [Concomitant]
     Active Substance: VITAMINS
     Dosage: 2.5 ML, UNK
     Dates: start: 20180927
  2. COTRIMOXAZOLE [Concomitant]
     Active Substance: SULFAMETHOXAZOLE\TRIMETHOPRIM
     Dosage: 120 MG, UNK
     Dates: start: 20180927
  3. NEVIRAPINE. [Concomitant]
     Active Substance: NEVIRAPINE
     Dosage: 1.5 ML, UNK
     Dates: start: 20180703
  4. DOLUTEGRAVIR [Suspect]
     Active Substance: DOLUTEGRAVIR
     Indication: HIV INFECTION
     Dosage: 50 UNK, QD
     Route: 064
     Dates: start: 20180423

REACTIONS (3)
  - Umbilical hernia [Not Recovered/Not Resolved]
  - Congenital skin dimples [Not Recovered/Not Resolved]
  - Birth mark [Not Recovered/Not Resolved]

NARRATIVE: CASE EVENT DATE: 20180702
